FAERS Safety Report 25076679 (Version 1)
Quarter: 2025Q1

REPORT INFORMATION
  Report Type: Spontaneous
  Country: US (occurrence: US)
  Receive Date: 20250313
  Receipt Date: 20250313
  Transmission Date: 20250408
  Serious: No
  Sender: BAUSCH AND LOMB
  Company Number: US-BAUSCH-BL-2025-003442

PATIENT
  Sex: Female

DRUGS (1)
  1. PIMECROLIMUS [Suspect]
     Active Substance: PIMECROLIMUS
     Indication: Perioral dermatitis
     Route: 065

REACTIONS (1)
  - Dry skin [Unknown]
